FAERS Safety Report 8842431 (Version 1)
Quarter: 2012Q4

REPORT INFORMATION
  Report Type: 
  Country: GB (occurrence: GB)
  Receive Date: 20121016
  Receipt Date: 20121016
  Transmission Date: 20130627
  Serious: Yes (Other)
  Sender: FDA-Public Use
  Company Number: GB-ROCHE-1119480

PATIENT
  Sex: Female

DRUGS (1)
  1. MABTHERA [Suspect]
     Indication: RHEUMATOID ARTHRITIS
     Dosage: last infusion on /May/2012
     Route: 065

REACTIONS (4)
  - Headache [Unknown]
  - Amnesia [Unknown]
  - Aphasia [Unknown]
  - Back pain [Unknown]
